FAERS Safety Report 7291029-7 (Version None)
Quarter: 2011Q1

REPORT INFORMATION
  Report Type: 
  Country: None (occurrence: None)
  Receive Date: 20110214
  Receipt Date: 20110208
  Transmission Date: 20110831
  Serious: Yes (Hospitalization)
  Sender: FDA-Public Use
  Company Number: DE-SANOFI-AVENTIS-2011SA007924

PATIENT
  Age: 74 Year
  Sex: Female
  Weight: 86 kg

DRUGS (20)
  1. DEXAMETHASONE [Suspect]
     Indication: ANTIEMETIC SUPPORTIVE CARE
     Route: 048
     Dates: start: 20101124, end: 20101126
  2. RANITIDINE [Concomitant]
     Indication: PROPHYLAXIS
     Route: 042
     Dates: start: 20101125, end: 20101125
  3. BUDESONIDE/FORMOTEROL [Concomitant]
     Indication: CHEMOTHERAPY
  4. CYCLOPHOSPHAMIDE [Suspect]
     Route: 041
     Dates: start: 20100812, end: 20100812
  5. UROMITEXAN [Concomitant]
     Route: 042
     Dates: start: 20101125, end: 20101125
  6. ACETYLSALICYLIC ACID [Concomitant]
     Indication: HYPERTENSION
     Route: 048
  7. METOCLOPRAMIDE HYDROCHLORIDE [Concomitant]
     Indication: ANTIEMETIC SUPPORTIVE CARE
  8. PEGFILGRASTIM [Concomitant]
     Indication: CHEMOTHERAPY
  9. PEGFILGRASTIM [Concomitant]
     Indication: PROPHYLAXIS
  10. DOCETAXEL [Suspect]
     Route: 041
     Dates: start: 20100812, end: 20100812
  11. GRANISETRON HCL [Concomitant]
     Indication: ANTIEMETIC SUPPORTIVE CARE
     Route: 048
     Dates: start: 20101125, end: 20101125
  12. RAMIPRIL [Concomitant]
     Indication: HYPERTENSION
     Route: 048
  13. ACETYLSALICYLIC ACID [Concomitant]
     Indication: CHEMOTHERAPY
     Route: 048
  14. BUDESONIDE/FORMOTEROL [Concomitant]
     Indication: HYPERTENSION
  15. CLEMASTINE FUMARATE [Concomitant]
     Indication: ALLERGY PROPHYLAXIS
     Route: 042
     Dates: start: 20101125, end: 20101125
  16. APREPITANT [Concomitant]
     Indication: ANTIEMETIC SUPPORTIVE CARE
     Route: 048
     Dates: start: 20101125, end: 20101125
  17. DOCETAXEL [Suspect]
     Indication: BREAST CANCER
     Route: 041
     Dates: start: 20101125, end: 20101125
  18. CYCLOPHOSPHAMIDE [Suspect]
     Indication: BREAST CANCER
     Route: 041
     Dates: start: 20101125, end: 20101125
  19. APREPITANT [Concomitant]
     Route: 048
     Dates: start: 20101126, end: 20101127
  20. RAMIPRIL [Concomitant]
     Indication: CHEMOTHERAPY
     Route: 048

REACTIONS (1)
  - DELIRIUM [None]
